FAERS Safety Report 7096957-3 (Version None)
Quarter: 2010Q4

REPORT INFORMATION
  Report Type: 
  Country: None (occurrence: None)
  Receive Date: 20101111
  Receipt Date: 20100326
  Transmission Date: 20110411
  Serious: No
  Sender: FDA-Public Use
  Company Number: US-KINGPHARMUSA00001-K201000384

PATIENT
  Sex: Female

DRUGS (2)
  1. FLECTOR [Suspect]
     Indication: INJURY
     Dosage: UNK PATCH, UNK
     Route: 061
     Dates: start: 20100101, end: 20100101
  2. FLECTOR [Suspect]
     Indication: ARTHRALGIA

REACTIONS (1)
  - MENOMETRORRHAGIA [None]
